FAERS Safety Report 5574922-2 (Version None)
Quarter: 2007Q4

REPORT INFORMATION
  Report Type: 
  Country: None (occurrence: None)
  Receive Date: 20071227
  Receipt Date: 20071217
  Transmission Date: 20080405
  Serious: Yes (Death)
  Sender: FDA-Public Use
  Company Number: A0588896A

PATIENT
  Age: 25 Year
  Sex: Male

DRUGS (1)
  1. PAXIL [Suspect]
     Route: 048
     Dates: start: 20031218, end: 20040827

REACTIONS (14)
  - AGITATION [None]
  - ANOREXIA [None]
  - ANXIETY [None]
  - CHEST PAIN [None]
  - COMPLETED SUICIDE [None]
  - GASTRIC DISORDER [None]
  - HEADACHE [None]
  - INSOMNIA [None]
  - NIGHT SWEATS [None]
  - NIGHTMARE [None]
  - PAIN [None]
  - PANIC ATTACK [None]
  - PARAESTHESIA [None]
  - TREMOR [None]
